FAERS Safety Report 7746336-8 (Version None)
Quarter: 2011Q3

REPORT INFORMATION
  Report Type: 
  Country: None (occurrence: None)
  Receive Date: 20110913
  Receipt Date: 20110902
  Transmission Date: 20111222
  Serious: Yes (Death, Life-Threatening, Hospitalization, Disabling, Other)
  Sender: FDA-Public Use
  Company Number: RU-SANOFI-AVENTIS-2011SA043821

PATIENT
  Age: 72 Year
  Sex: Male
  Weight: 88 kg

DRUGS (10)
  1. DIGOXIN [Concomitant]
  2. PERINDOPRIL [Concomitant]
  3. ASPIRIN [Concomitant]
  4. LEVOTHYROXINE SODIUM [Concomitant]
  5. ENALAPRIL MALEATE [Concomitant]
  6. DRONEDARONE HCL [Suspect]
     Indication: ATRIAL FIBRILLATION
     Route: 048
     Dates: start: 20101222, end: 20110113
  7. METOPROLOL SUCCINATE [Concomitant]
  8. THIAZIDES [Concomitant]
  9. LASIX [Concomitant]
  10. ALL OTHER THERAPEUTIC PRODUCTS [Concomitant]

REACTIONS (11)
  - COMPRESSION FRACTURE [None]
  - SEPSIS [None]
  - RENAL FAILURE ACUTE [None]
  - ISCHAEMIC STROKE [None]
  - SUBDURAL HYGROMA [None]
  - MYOCARDIAL INFARCTION [None]
  - CARDIAC DEATH [None]
  - MULTIPLE FRACTURES [None]
  - MICTURITION DISORDER [None]
  - FALL [None]
  - PELVIC HAEMATOMA [None]
